FAERS Safety Report 13019766 (Version 1)
Quarter: 2016Q4

REPORT INFORMATION
  Report Type: Spontaneous
  Country: US (occurrence: US)
  Receive Date: 20161212
  Receipt Date: 20161212
  Transmission Date: 20170207
  Serious: No
  Sender: FDA-Public Use
  Company Number: US-ROCHE-1832511

PATIENT
  Sex: Male

DRUGS (32)
  1. ZANAFLEX [Concomitant]
     Active Substance: TIZANIDINE HYDROCHLORIDE
     Dosage: EVERY NIGHT AT BEDTIME
     Route: 048
  2. TRANSDERM SCOP [Concomitant]
     Active Substance: SCOPOLAMINE
     Route: 065
  3. CELEBREX [Concomitant]
     Active Substance: CELECOXIB
     Route: 065
     Dates: start: 20110404
  4. TRICOR [Concomitant]
     Active Substance: FENOFIBRATE
     Route: 065
     Dates: start: 20110404
  5. LYRICA [Concomitant]
     Active Substance: PREGABALIN
     Route: 048
  6. LINZESS [Concomitant]
     Active Substance: LINACLOTIDE
     Route: 048
  7. CYANOCOBALAMIN. [Concomitant]
     Active Substance: CYANOCOBALAMIN
     Route: 065
  8. PROVIGIL [Concomitant]
     Active Substance: MODAFINIL
     Dosage: ONE TABLET DAILY IN THE MORNING
     Route: 048
  9. NEURONTIN [Suspect]
     Active Substance: GABAPENTIN
     Indication: PRODUCT USED FOR UNKNOWN INDICATION
     Route: 065
     Dates: start: 20120105
  10. VICOPROFEN [Concomitant]
     Active Substance: HYDROCODONE BITARTRATE\IBUPROFEN
     Dosage: 7.5-200 MG
     Route: 048
  11. RAMIPRIL. [Concomitant]
     Active Substance: RAMIPRIL
     Indication: BLOOD PRESSURE MEASUREMENT
     Route: 048
  12. METHYLPREDNISOLONE. [Concomitant]
     Active Substance: METHYLPREDNISOLONE
     Route: 065
     Dates: start: 20141205
  13. CRESTOR [Suspect]
     Active Substance: ROSUVASTATIN CALCIUM
     Indication: PRODUCT USED FOR UNKNOWN INDICATION
     Route: 065
     Dates: start: 20130308
  14. BUPROPION HCL [Concomitant]
     Active Substance: BUPROPION HYDROCHLORIDE
     Route: 048
  15. OSCAL D [Concomitant]
     Active Substance: CALCIUM CARBONATE\CHOLECALCIFEROL
     Route: 048
  16. TRILIPIX [Concomitant]
     Active Substance: FENOFIBRIC ACID
     Route: 065
     Dates: start: 20110404
  17. PREDNISONE. [Concomitant]
     Active Substance: PREDNISONE
     Route: 065
     Dates: start: 20130926
  18. VALIUM [Suspect]
     Active Substance: DIAZEPAM
     Indication: PRODUCT USED FOR UNKNOWN INDICATION
     Route: 065
     Dates: start: 20121004
  19. JANUVIA [Concomitant]
     Active Substance: SITAGLIPTIN PHOSPHATE
     Indication: DIABETES MELLITUS
     Route: 048
  20. FLU VACCINATION [Concomitant]
     Active Substance: INFLUENZA VIRUS VACCINE
     Route: 065
     Dates: start: 20151214
  21. ANDROGEL [Concomitant]
     Active Substance: TESTOSTERONE
     Dosage: 20.25 MG/ACT (1.62%) GEL
     Route: 065
  22. VIAGRA [Concomitant]
     Active Substance: SILDENAFIL CITRATE
     Dosage: 1 TAB
     Route: 048
  23. NEXIUM [Concomitant]
     Active Substance: ESOMEPRAZOLE MAGNESIUM
     Route: 048
  24. INVOKANA [Concomitant]
     Active Substance: CANAGLIFLOZIN
     Indication: DIABETES MELLITUS
     Dosage: 1 TABLET BEFORE FIRST MEAL OF DAY
     Route: 048
  25. FLURAZEPAM HCL [Concomitant]
     Active Substance: FLURAZEPAM HYDROCHLORIDE
     Dosage: EVERY NIGHT AT BEDTIME
     Route: 048
  26. BUTRANS [Concomitant]
     Active Substance: BUPRENORPHINE
     Dosage: 10 MCG/HR PTWK, 1 PATCH
     Route: 065
  27. MIRALAX [Concomitant]
     Active Substance: POLYETHYLENE GLYCOL 3350
     Indication: CONSTIPATION
     Dosage: 1 CAPFUL IN 8 OUNCES WATER
     Route: 065
  28. TETRACYCLINE HCL [Suspect]
     Active Substance: TETRACYCLINE HYDROCHLORIDE
     Indication: PRODUCT USED FOR UNKNOWN INDICATION
     Route: 065
     Dates: start: 20080604
  29. LIDODERM [Concomitant]
     Active Substance: LIDOCAINE
     Indication: PAIN
     Dosage: APPLY ONE TO TWO PATCHES DAILY
     Route: 065
  30. FLORAJEN3 [Concomitant]
     Route: 048
  31. VITAMIN D3 [Concomitant]
     Active Substance: CHOLECALCIFEROL
     Route: 048
  32. SAVELLA [Concomitant]
     Active Substance: MILNACIPRAN HYDROCHLORIDE
     Route: 048

REACTIONS (5)
  - Muscle atrophy [Unknown]
  - Disorientation [Unknown]
  - Rash [Unknown]
  - Urticaria [Unknown]
  - Depression [Unknown]
